FAERS Safety Report 7118422-7 (Version None)
Quarter: 2010Q4

REPORT INFORMATION
  Report Type: 
  Country: None (occurrence: None)
  Receive Date: 20101123
  Receipt Date: 20101112
  Transmission Date: 20110411
  Serious: Yes (Other)
  Sender: FDA-Public Use
  Company Number: CN-JNJFOC-20101105233

PATIENT
  Age: 8 Year
  Sex: Male

DRUGS (6)
  1. TOPAMAX [Suspect]
     Indication: CEREBRAL ARTERY STENOSIS
     Route: 048
  2. TOPAMAX [Suspect]
     Route: 048
  3. TOPAMAX [Suspect]
     Indication: ABDOMINAL PAIN UPPER
     Route: 048
  4. TOPAMAX [Suspect]
     Route: 048
  5. TOPAMAX [Suspect]
     Indication: HEADACHE
     Route: 048
  6. TOPAMAX [Suspect]
     Route: 048

REACTIONS (1)
  - MUSCULAR WEAKNESS [None]
